FAERS Safety Report 25199711 (Version 2)
Quarter: 2025Q3

REPORT INFORMATION
  Report Type: Spontaneous
  Country: US (occurrence: US)
  Receive Date: 20250415
  Receipt Date: 20250803
  Transmission Date: 20251021
  Serious: Yes (Death, Hospitalization, Other)
  Sender: ALEXION PHARMACEUTICALS
  Company Number: US-AstraZeneca-2024A130341

PATIENT
  Age: 70 Year
  Sex: Male
  Weight: 114.3 kg

DRUGS (31)
  1. PRILOSEC [Suspect]
     Active Substance: OMEPRAZOLE MAGNESIUM
     Route: 065
  2. DOCETAXEL [Suspect]
     Active Substance: DOCETAXEL
     Indication: Prostate cancer
     Dates: start: 20230914, end: 20230914
  3. DOCETAXEL [Suspect]
     Active Substance: DOCETAXEL
     Dates: start: 20231005, end: 20231005
  4. DOCETAXEL [Suspect]
     Active Substance: DOCETAXEL
     Dates: start: 20231130, end: 20231130
  5. DOCETAXEL [Suspect]
     Active Substance: DOCETAXEL
     Dates: start: 20231220, end: 20231220
  6. DOCETAXEL [Suspect]
     Active Substance: DOCETAXEL
     Dates: start: 20240111, end: 20240111
  7. DOCETAXEL [Suspect]
     Active Substance: DOCETAXEL
     Dates: start: 20240201, end: 20240201
  8. VUDALIMAB [Suspect]
     Active Substance: VUDALIMAB
     Indication: Prostate cancer
     Dates: start: 20230914, end: 20230914
  9. VUDALIMAB [Suspect]
     Active Substance: VUDALIMAB
     Dates: start: 20230928, end: 20230928
  10. VUDALIMAB [Suspect]
     Active Substance: VUDALIMAB
     Dates: start: 20231214, end: 20231214
  11. VUDALIMAB [Suspect]
     Active Substance: VUDALIMAB
     Dates: start: 20231228, end: 20231228
  12. VUDALIMAB [Suspect]
     Active Substance: VUDALIMAB
     Dates: start: 20240111, end: 20240111
  13. VUDALIMAB [Suspect]
     Active Substance: VUDALIMAB
     Dates: start: 20240125, end: 20240125
  14. VUDALIMAB [Suspect]
     Active Substance: VUDALIMAB
     Dates: start: 20240208, end: 20240208
  15. VUDALIMAB [Suspect]
     Active Substance: VUDALIMAB
     Dates: start: 20240222, end: 20240222
  16. VUDALIMAB [Suspect]
     Active Substance: VUDALIMAB
     Dates: start: 20240307, end: 20240307
  17. TYLENOL [Concomitant]
     Active Substance: ACETAMINOPHEN
     Route: 065
  18. ZYLOPRIM [Concomitant]
     Active Substance: ALLOPURINOL
     Route: 065
  19. LOTREL [Concomitant]
     Active Substance: AMLODIPINE BESYLATE\BENAZEPRIL HYDROCHLORIDE
     Route: 065
  20. LIPITOR [Concomitant]
     Active Substance: ATORVASTATIN CALCIUM
     Route: 065
  21. VITAMIN D3 [Concomitant]
     Active Substance: CHOLECALCIFEROL
     Route: 065
  22. DENOSUMAB [Concomitant]
     Active Substance: DENOSUMAB
     Route: 065
  23. NORCO [Concomitant]
     Active Substance: ACETAMINOPHEN\HYDROCODONE BITARTRATE
     Route: 065
  24. APIXABAN [Concomitant]
     Active Substance: APIXABAN
     Route: 065
  25. LEVOTHYROXINE [Concomitant]
     Active Substance: LEVOTHYROXINE
     Route: 065
  26. IMODIUM [Concomitant]
     Active Substance: LOPERAMIDE HYDROCHLORIDE
     Route: 065
  27. LOMOTIL [Concomitant]
     Active Substance: ATROPINE SULFATE\DIPHENOXYLATE HYDROCHLORIDE
     Route: 065
  28. PREDNISONE [Concomitant]
     Active Substance: PREDNISONE
     Route: 065
  29. ZOFRAN [Concomitant]
     Active Substance: ONDANSETRON HYDROCHLORIDE
     Route: 065
  30. LEUPROLIDE [Concomitant]
     Active Substance: LEUPROLIDE
     Route: 065
  31. COMPAZINE [Concomitant]
     Active Substance: PROCHLORPERAZINE MALEATE
     Route: 065

REACTIONS (22)
  - Malignant neoplasm progression [Fatal]
  - Pneumonia [Recovering/Resolving]
  - Pulmonary embolism [Recovering/Resolving]
  - Liver function test increased [Unknown]
  - Embolism [Unknown]
  - Hepatic function abnormal [Unknown]
  - Large intestine polyp [Unknown]
  - Liver injury [Unknown]
  - Effusion [Unknown]
  - Dyspnoea [Unknown]
  - Fatigue [Unknown]
  - Abdominal distension [Unknown]
  - Gout [Unknown]
  - Back pain [Unknown]
  - Arthralgia [Unknown]
  - Headache [Unknown]
  - Bone pain [Unknown]
  - Hypertension [Unknown]
  - Hyperlipidaemia [Unknown]
  - Nephrolithiasis [Unknown]
  - Gastrooesophageal reflux disease [Unknown]
  - Diverticulitis [Unknown]

NARRATIVE: CASE EVENT DATE: 20240516
